FAERS Safety Report 7264398-1 (Version None)
Quarter: 2011Q1

REPORT INFORMATION
  Report Type: 
  Country: None (occurrence: None)
  Receive Date: 20110131
  Receipt Date: 20110118
  Transmission Date: 20110831
  Serious: No
  Sender: FDA-Public Use
  Company Number: US-BIOGENIDEC-2011BI002957

PATIENT
  Sex: Male

DRUGS (1)
  1. AVONEX [Suspect]
     Indication: MULTIPLE SCLEROSIS
     Route: 030
     Dates: start: 20081023

REACTIONS (5)
  - FACIAL PAIN [None]
  - MEMORY IMPAIRMENT [None]
  - ASTHENIA [None]
  - VISUAL IMPAIRMENT [None]
  - HYPOACUSIS [None]
